FAERS Safety Report 9696818 (Version 2)
Quarter: 2013Q4

REPORT INFORMATION
  Report Type: Spontaneous
  Country: DE (occurrence: DE)
  Receive Date: 20131119
  Receipt Date: 20131210
  Transmission Date: 20140711
  Serious: Yes (Other)
  Sender: FDA-Public Use
  Company Number: GXKR2013DE003602

PATIENT
  Age: 52 Year
  Sex: Female
  Weight: 58 kg

DRUGS (2)
  1. OMEP [Suspect]
     Route: 048
  2. ASS [Concomitant]

REACTIONS (1)
  - Eye haemorrhage [Not Recovered/Not Resolved]
